FAERS Safety Report 20472363 (Version 3)
Quarter: 2022Q2

REPORT INFORMATION
  Report Type: Spontaneous
  Country: US (occurrence: US)
  Receive Date: 20220215
  Receipt Date: 20220602
  Transmission Date: 20220721
  Serious: Yes (Hospitalization, Other)
  Sender: FDA-Public Use
  Company Number: US-PFIZER INC-202200185631

PATIENT
  Age: 80 Year
  Sex: Female

DRUGS (3)
  1. IBRANCE [Suspect]
     Active Substance: PALBOCICLIB
     Indication: Breast cancer female
     Dosage: 100MG EACH DAY THREE WEEKS AND THEN HAS ONE WEEK OFF
  2. ASCORBIC ACID\CYANOCOBALAMIN\FOLIC ACID\IRON [Suspect]
     Active Substance: ASCORBIC ACID\CYANOCOBALAMIN\FOLIC ACID\IRON
     Dosage: UNK
  3. FERROUS BISGLYCINATE [Suspect]
     Active Substance: FERROUS BISGLYCINATE
     Dosage: UNK

REACTIONS (5)
  - Heart rate decreased [Unknown]
  - Cataract [Unknown]
  - Vision blurred [Unknown]
  - Visual brightness [Unknown]
  - Product dose omission issue [Unknown]
